FAERS Safety Report 6075289-6 (Version None)
Quarter: 2009Q1

REPORT INFORMATION
  Report Type: 
  Country: None (occurrence: None)
  Receive Date: 20090212
  Receipt Date: 20090210
  Transmission Date: 20090719
  Serious: Yes (Death)
  Sender: FDA-Public Use
  Company Number: PHEH2009US01465

PATIENT
  Sex: Male
  Weight: 81.633 kg

DRUGS (1)
  1. ZOMETA [Suspect]
     Indication: METASTASES TO BONE
     Dosage: 4 MG, UNK
     Route: 042
     Dates: start: 20081015, end: 20081015

REACTIONS (2)
  - MALIGNANT NEOPLASM PROGRESSION [None]
  - PNEUMONIA [None]
